FAERS Safety Report 21713669 (Version 1)
Quarter: 2022Q4

REPORT INFORMATION
  Report Type: Spontaneous
  Country: US (occurrence: US)
  Receive Date: 20221212
  Receipt Date: 20221212
  Transmission Date: 20230112
  Serious: No
  Sender: FDA-Public Use
  Company Number: US-AMERICAN REGENT INC-2022001762

PATIENT
  Sex: Female

DRUGS (7)
  1. VENOFER [Suspect]
     Active Substance: IRON SUCROSE
     Indication: Iron deficiency anaemia
     Dosage: 300 MILLIGRAM ONCE A WEEK TIMES THREE
     Route: 042
     Dates: start: 201512, end: 20151223
  2. CLARITIN [Concomitant]
     Active Substance: LORATADINE
     Indication: Rhinitis allergic
     Dosage: TAKE 1 TABLET (10 MG) ONCE DAILY
     Route: 048
  3. FERROUS SULFATE [Concomitant]
     Active Substance: FERROUS SULFATE
     Indication: Iron deficiency anaemia
     Dosage: TAKE 1 TABLET 3 TIMES A DAY
     Route: 048
     Dates: start: 20151204
  4. LISINOPRIL [Concomitant]
     Active Substance: LISINOPRIL
     Indication: Hypertension
     Dosage: TAKE 1 TABLET (2.5 MG) ONCE DAILY
     Route: 048
     Dates: start: 20151014
  5. METFORMIN [Concomitant]
     Active Substance: METFORMIN HYDROCHLORIDE
     Indication: Type 2 diabetes mellitus
     Dosage: TAKE 1 TABLET (1000 MG) 2 TIMES PER DAY WITH MORNING AND EVENING MEALS FOR 30 DAYS
     Route: 048
     Dates: start: 20150812
  6. PROMETHAZINE [Concomitant]
     Active Substance: PROMETHAZINE HYDROCHLORIDE
     Indication: Product used for unknown indication
     Dosage: TAKE 1 TABLET (25 MG) EVERY 6 HOURS AS NEEDED
     Route: 048
     Dates: start: 20151014
  7. VITAMIN C [Concomitant]
     Active Substance: ASCORBIC ACID
     Indication: Product used for unknown indication
     Dosage: TAKE 1 TABLET 2 TIMES A DAY
     Route: 048
     Dates: start: 20150109

REACTIONS (2)
  - Pain in extremity [Not Recovered/Not Resolved]
  - Condition aggravated [Not Recovered/Not Resolved]
